FAERS Safety Report 17186977 (Version 3)
Quarter: 2021Q2

REPORT INFORMATION
  Report Type: Spontaneous
  Country: US (occurrence: US)
  Receive Date: 20191220
  Receipt Date: 20210406
  Transmission Date: 20210716
  Serious: Yes (Hospitalization, Other)
  Sender: FDA-Public Use
  Company Number: US-TEVA-2019-US-1154864

PATIENT
  Age: 63 Year
  Sex: Male
  Weight: 83.46 kg

DRUGS (25)
  1. VALSARTAN W/HYDROCHLOROTHIAZIDE ACTAVIS [Suspect]
     Active Substance: HYDROCHLOROTHIAZIDE\VALSARTAN
     Indication: HYPERTENSION
     Dosage: 320 MILLIGRAM DAILY;
     Route: 048
     Dates: start: 20130705, end: 20151028
  2. ADVIL [Concomitant]
     Active Substance: IBUPROFEN
     Indication: PAIN
     Dosage: 400 MILLIGRAM AS NEEDED
     Dates: start: 2015
  3. COLD SYRUP [Concomitant]
     Indication: INFLUENZA LIKE ILLNESS
     Dosage: NORMAL DOSE, AS NEEDED
  4. LOTRISONE [Concomitant]
     Active Substance: BETAMETHASONE DIPROPIONATE\CLOTRIMAZOLE
     Dosage: 1?0.05 PERCENT;  BID APPLY CREAM TO AFFECTED AREA TWICE PER DAY
  5. STEGLATRO [Concomitant]
     Active Substance: ERTUGLIFLOZIN PIDOLATE
  6. PRAVASTATIN SODIUM. [Concomitant]
     Active Substance: PRAVASTATIN SODIUM
     Dosage: 40 MILLIGRAM DAILY; AT BEDTIME
     Route: 048
  7. COLD SYRUP [Concomitant]
     Indication: NASOPHARYNGITIS
  8. INSULIN [Concomitant]
     Active Substance: INSULIN NOS
     Indication: TYPE 2 DIABETES MELLITUS
     Dosage: AS NEEDED
     Dates: start: 2009
  9. FISH OIL [Concomitant]
     Active Substance: FISH OIL
     Dosage: 2000 MILLIGRAM DAILY;
     Route: 048
  10. ASPIRIN. [Concomitant]
     Active Substance: ASPIRIN
     Dosage: 81 MILLIGRAM DAILY;
     Route: 048
  11. JANUVIA [Concomitant]
     Active Substance: SITAGLIPTIN PHOSPHATE
     Indication: TYPE 2 DIABETES MELLITUS
     Dosage: 100 MILLIGRAM DAILY;
     Route: 048
     Dates: start: 2009
  12. OLMESARTAN [Concomitant]
     Active Substance: OLMESARTAN
     Dosage: 40 MILLIGRAM DAILY;
  13. VALSARTAN/HYDROCHLOORTHIAZIDE SANDOZ [Suspect]
     Active Substance: HYDROCHLOROTHIAZIDE\VALSARTAN
     Dosage: DOSAGE: 160?12.5MILLIGRAM;?HYDROCHLOROTHIAZIDE W/VALSARTAN SANDOZ
     Route: 065
  14. GLUCOTROL XL [Concomitant]
     Active Substance: GLIPIZIDE
     Dosage: 20 MILLIGRAM DAILY; EVERY MORNING
     Route: 048
  15. VALSARTAN W/HYDROCHLOROTHIAZIDE ACTAVIS [Suspect]
     Active Substance: HYDROCHLOROTHIAZIDE\VALSARTAN
     Dosage: DOSAGE: 160?12.5 MILLIGRAM
     Route: 065
  16. VALSARTAN SOLCO [Suspect]
     Active Substance: VALSARTAN
     Indication: HYPERTENSION
     Dosage: 320 MILLIGRAM DAILY;
     Route: 048
     Dates: start: 20160830, end: 20180801
  17. VALSARTAN AUROBINDO [Suspect]
     Active Substance: VALSARTAN
     Indication: HYPERTENSION
     Dosage: DOSAGE: 320 MG
     Route: 048
  18. METFORMIN [Concomitant]
     Active Substance: METFORMIN HYDROCHLORIDE
     Indication: TYPE 2 DIABETES MELLITUS
     Dosage: 2000 MILLIGRAM DAILY;
     Dates: start: 2009
  19. CIALIS [Concomitant]
     Active Substance: TADALAFIL
     Dosage: USE AS DIRECTED
  20. DIOVAN HCT [Suspect]
     Active Substance: HYDROCHLOROTHIAZIDE\VALSARTAN
     Dosage: DOSAGE: 160?12.MILLIGRAM; TAKE ONE TABLET BY MOUTH DAILY
     Route: 048
  21. HYDROCHLOROTHIAZIDE W/VALSARTAN LUPIN [Suspect]
     Active Substance: HYDROCHLOROTHIAZIDE\VALSARTAN
     Dosage: DOSAGE: 160?12.5MILLIGRAM;
     Route: 065
  22. VALSARTAN/HYDROCHLOROTHIAZIDE PAR PHARM [Suspect]
     Active Substance: HYDROCHLOROTHIAZIDE\VALSARTAN
     Dosage: DOSAGE: 320?12.5MILLIGRAM;?HYDROCHLOROTHIAZIDE W/VALSARTAN PAR
     Route: 065
  23. GLIMEPIRIDE. [Concomitant]
     Active Substance: GLIMEPIRIDE
     Indication: TYPE 2 DIABETES MELLITUS
     Dosage: 4 MILLIGRAM DAILY;
     Dates: start: 2009
  24. TYLENOL [Concomitant]
     Active Substance: ACETAMINOPHEN
     Indication: PAIN
     Dosage: 500MILLIGRAM AS NEEDED
     Dates: start: 1999
  25. ACTOS [Concomitant]
     Active Substance: PIOGLITAZONE HYDROCHLORIDE
     Dosage: 30 MILLIGRAM DAILY;
     Route: 048

REACTIONS (2)
  - Colon adenoma [Unknown]
  - Rectal cancer [Recovered/Resolved]

NARRATIVE: CASE EVENT DATE: 20190611
